FAERS Safety Report 11468888 (Version 2)
Quarter: 2015Q4

REPORT INFORMATION
  Report Type: Spontaneous
  Country: US (occurrence: US)
  Receive Date: 20150908
  Receipt Date: 20151208
  Transmission Date: 20160304
  Serious: Yes (Hospitalization, Other)
  Sender: FDA-Public Use
  Company Number: US-ELI_LILLY_AND_COMPANY-US201508008706

PATIENT
  Sex: Female
  Weight: 68 kg

DRUGS (24)
  1. LYRICA [Suspect]
     Active Substance: PREGABALIN
     Dosage: 300 MG, CLOSE TO NIGHT
     Route: 048
     Dates: start: 2007, end: 20150301
  2. SOMA [Suspect]
     Active Substance: CARISOPRODOL
     Indication: MUSCLE RELAXANT THERAPY
     Dosage: 350 MG, QID
     Route: 048
     Dates: end: 20150801
  3. TRAMADOL. [Suspect]
     Active Substance: TRAMADOL
     Indication: PAIN
     Dosage: 50 MG, PRN
     Route: 048
     Dates: start: 20150703, end: 20150803
  4. AMITRIPTYLINE [Concomitant]
     Active Substance: AMITRIPTYLINE
     Indication: INSOMNIA
     Dosage: 50 MG, QD
     Route: 065
  5. LYRICA [Suspect]
     Active Substance: PREGABALIN
     Indication: FIBROMYALGIA
     Dosage: 300 MG, EACH MORNING
     Route: 048
     Dates: start: 2007, end: 20150301
  6. LYRICA [Suspect]
     Active Substance: PREGABALIN
     Dosage: 300 MG, CLOSE TO NIGHT
     Dates: start: 20150424
  7. CELEBREX [Concomitant]
     Active Substance: CELECOXIB
     Dosage: UNK, UNKNOWN
     Route: 065
  8. METHOCARBAMOL. [Suspect]
     Active Substance: METHOCARBAMOL
     Indication: MUSCLE SPASMS
     Dosage: 750 MG, QID
     Route: 048
     Dates: end: 201507
  9. ALLOPURINOL. [Suspect]
     Active Substance: ALLOPURINOL
     Indication: GOUT
     Dosage: 300 MG, QD
     Route: 048
     Dates: end: 201506
  10. CYMBALTA [Suspect]
     Active Substance: DULOXETINE HYDROCHLORIDE
     Indication: DEPRESSION
  11. ZYPREXA [Suspect]
     Active Substance: OLANZAPINE
     Indication: MENTAL DISORDER
  12. LYRICA [Suspect]
     Active Substance: PREGABALIN
     Dosage: 300 MG, EACH MORNING
     Route: 048
     Dates: start: 20150424
  13. SKELAXIN [Suspect]
     Active Substance: METAXALONE
     Indication: MUSCLE RELAXANT THERAPY
     Dosage: 800 MG, TID
     Route: 048
  14. METHOCARBAMOL. [Suspect]
     Active Substance: METHOCARBAMOL
     Dosage: 750 MG, QID
     Route: 048
     Dates: start: 201508
  15. SOMA [Suspect]
     Active Substance: CARISOPRODOL
     Dosage: 350 MG, QID
     Route: 048
     Dates: start: 20150812
  16. HYDROCODONE [Suspect]
     Active Substance: HYDROCODONE
     Indication: PAIN
     Dosage: 1 DF, PRN
     Route: 048
     Dates: end: 201502
  17. HYDROCODONE [Suspect]
     Active Substance: HYDROCODONE
     Dosage: 1 DF, PRN
     Route: 048
     Dates: start: 20150812
  18. AMITRIPTYLINE [Concomitant]
     Active Substance: AMITRIPTYLINE
     Dosage: 100 MG, QD
     Dates: start: 201507
  19. ZYPREXA [Suspect]
     Active Substance: OLANZAPINE
     Indication: SLEEP DISORDER
     Dosage: UNK, UNKNOWN
     Route: 048
     Dates: end: 201506
  20. METHOCARBAMOL. [Suspect]
     Active Substance: METHOCARBAMOL
     Dosage: 20 DF, UNK
     Route: 048
     Dates: start: 201404, end: 201404
  21. ZOLPIDEM [Concomitant]
     Active Substance: ZOLPIDEM\ZOLPIDEM TARTRATE
     Indication: INSOMNIA
     Dosage: UNK, UNKNOWN
     Route: 048
     Dates: start: 2015
  22. CYMBALTA [Suspect]
     Active Substance: DULOXETINE HYDROCHLORIDE
     Indication: FIBROMYALGIA
     Dosage: UNK, UNKNOWN
     Route: 065
  23. METAXALONE. [Suspect]
     Active Substance: METAXALONE
     Indication: MUSCLE RELAXANT THERAPY
     Dosage: 800 MG, TID
     Route: 048
  24. AMITRIPTYLINE [Concomitant]
     Active Substance: AMITRIPTYLINE
     Indication: PAIN
     Dosage: 25 MG, TID
     Route: 065
     Dates: start: 201502

REACTIONS (21)
  - Headache [Unknown]
  - Dyspnoea [Unknown]
  - Oral disorder [Unknown]
  - Appetite disorder [Unknown]
  - Pain [Unknown]
  - Cerebrovascular accident [Unknown]
  - Insomnia [Unknown]
  - Drug ineffective [Unknown]
  - Myocardial infarction [Unknown]
  - Eye disorder [Unknown]
  - Hypokinesia [Unknown]
  - Migraine [Unknown]
  - Dyskinesia [Unknown]
  - Seizure [Unknown]
  - Weight increased [Unknown]
  - Pruritus [Unknown]
  - Peripheral swelling [Recovered/Resolved]
  - Suicidal ideation [Recovered/Resolved]
  - Multiple sclerosis [Unknown]
  - Gout [Unknown]
  - Myalgia [Unknown]
